FAERS Safety Report 7565023-2 (Version None)
Quarter: 2011Q2

REPORT INFORMATION
  Report Type: 
  Country: None (occurrence: None)
  Receive Date: 20110622
  Receipt Date: 20110425
  Transmission Date: 20111010
  Serious: Yes (Other)
  Sender: FDA-Public Use
  Company Number: US-MYLANLABS-2011S1007048

PATIENT
  Age: 29 Year
  Sex: Male
  Weight: 99.79 kg

DRUGS (6)
  1. CLOZAPINE [Suspect]
     Indication: SCHIZOPHRENIA
     Route: 048
     Dates: start: 20110316, end: 20110330
  2. LAMOTRIGINE [Concomitant]
  3. EFFEXOR XR [Concomitant]
  4. GEODON [Concomitant]
     Dosage: 80MG - 120MG
  5. AMANTADINE HCL [Concomitant]
  6. BENZTROPINE MESYLATE [Concomitant]

REACTIONS (1)
  - GRANULOCYTOPENIA [None]
